FAERS Safety Report 5918879-0 (Version None)
Quarter: 2008Q4

REPORT INFORMATION
  Report Type: 
  Country: None (occurrence: None)
  Receive Date: 20081015
  Receipt Date: 20081003
  Transmission Date: 20090506
  Serious: Yes (Death)
  Sender: FDA-Public Use
  Company Number: JP-AMGEN-US312756

PATIENT
  Sex: Female
  Weight: 47 kg

DRUGS (7)
  1. ENBREL [Suspect]
     Indication: RHEUMATOID ARTHRITIS
     Dosage: PREFILLED SYRINGE:  25 MG 2X PER WEEK
     Route: 058
     Dates: start: 20080602, end: 20080825
  2. ENBREL [Suspect]
     Dosage: LYOPHILIZED:  50 MG WEEKLY
     Route: 058
     Dates: start: 20080529, end: 20080601
  3. PREDONINE [Suspect]
     Indication: RHEUMATOID ARTHRITIS
     Route: 048
  4. PREDONINE [Suspect]
     Route: 048
     Dates: start: 20080131
  5. OMEPRAZOLE [Concomitant]
     Indication: RHEUMATOID ARTHRITIS
     Route: 048
  6. LORCAM [Concomitant]
     Indication: RHEUMATOID ARTHRITIS
     Route: 048
  7. RIMATIL [Concomitant]
     Indication: RHEUMATOID ARTHRITIS
     Route: 048

REACTIONS (1)
  - CARDIOVASCULAR DISORDER [None]
